FAERS Safety Report 16769167 (Version 2)
Quarter: 2019Q3

REPORT INFORMATION
  Report Type: Spontaneous
  Country: SK (occurrence: SK)
  Receive Date: 20190903
  Receipt Date: 20190912
  Transmission Date: 20191005
  Serious: Yes (Death, Hospitalization, Other)
  Sender: FDA-Public Use
  Company Number: CZ-GLAXOSMITHKLINE-CZ2019EME158616

PATIENT

DRUGS (7)
  1. BELIMUMAB [Suspect]
     Active Substance: BELIMUMAB
     Indication: SYSTEMIC LUPUS ERYTHEMATOSUS
     Dosage: UNK
     Dates: start: 201504
  2. AZATHIOPRINE. [Suspect]
     Active Substance: AZATHIOPRINE
     Indication: SYSTEMIC LUPUS ERYTHEMATOSUS
     Dosage: UNK
  3. PREDNISONE. [Suspect]
     Active Substance: PREDNISONE
     Indication: SYSTEMIC LUPUS ERYTHEMATOSUS
     Dosage: UNK
  4. CYCLOPHOSPHAMIDE. [Suspect]
     Active Substance: CYCLOPHOSPHAMIDE
     Indication: SYSTEMIC LUPUS ERYTHEMATOSUS
     Dosage: UNK
  5. MYCOPHENOLATE MOFETIL. [Suspect]
     Active Substance: MYCOPHENOLATE MOFETIL
     Indication: SYSTEMIC LUPUS ERYTHEMATOSUS
     Dosage: UNK
  6. METHOTREXATE. [Suspect]
     Active Substance: METHOTREXATE
     Indication: SYSTEMIC LUPUS ERYTHEMATOSUS
     Dosage: UNK
  7. CYCLOSPORINE A [Suspect]
     Active Substance: CYCLOSPORINE
     Indication: SYSTEMIC LUPUS ERYTHEMATOSUS
     Dosage: UNK

REACTIONS (16)
  - Cerebral infarction [Unknown]
  - Lymphopenia [Unknown]
  - Arrhythmia [Unknown]
  - Speech disorder [Unknown]
  - Nuclear magnetic resonance imaging brain abnormal [Unknown]
  - Pneumonia [Unknown]
  - Limb discomfort [Unknown]
  - Brain stem syndrome [Unknown]
  - Progressive bulbar palsy [Unknown]
  - Dizziness [Unknown]
  - Acute respiratory failure [Unknown]
  - Cardiac arrest [Fatal]
  - Mental disorder [Unknown]
  - CD4 lymphocytes decreased [Unknown]
  - Progressive multifocal leukoencephalopathy [Fatal]
  - Hypotension [Unknown]

NARRATIVE: CASE EVENT DATE: 201602
